FAERS Safety Report 9830751 (Version 2)
Quarter: 2014Q1

REPORT INFORMATION
  Report Type: Spontaneous
  Country: IL (occurrence: IL)
  Receive Date: 20140120
  Receipt Date: 20140205
  Transmission Date: 20141002
  Serious: Yes (Death)
  Sender: FDA-Public Use
  Company Number: IL-ABBVIE-14P-082-1191233-00

PATIENT
  Age: 72 Year
  Sex: Female

DRUGS (2)
  1. ZEMPLAR [Suspect]
     Indication: BLOOD PARATHYROID HORMONE ABNORMAL
  2. HYPERTENSION MEDICATIONS [Concomitant]
     Indication: HYPERTENSION

REACTIONS (2)
  - Cerebrovascular accident [Fatal]
  - Pruritus [Unknown]
